FAERS Safety Report 24206830 (Version 3)
Quarter: 2025Q3

REPORT INFORMATION
  Report Type: Report from Study
  Country: KR (occurrence: KR)
  Receive Date: 20240813
  Receipt Date: 20250922
  Transmission Date: 20251021
  Serious: Yes (Hospitalization, Other)
  Sender: JAZZ
  Company Number: KR-BR-2024-0201

PATIENT
  Age: 68 Year
  Sex: Male
  Weight: 62.8 kg

DRUGS (23)
  1. LURBINECTEDIN [Suspect]
     Active Substance: LURBINECTEDIN
     Indication: Product used for unknown indication
     Dates: start: 20240408, end: 20240408
  2. LURBINECTEDIN [Suspect]
     Active Substance: LURBINECTEDIN
     Dosage: 2.6 MILLIGRAM/SQ. METER, Q3W
     Dates: start: 20240709, end: 20240709
  3. NALOXONE HYDROCHLORIDE\OXYCODONE HYDROCHLORIDE [Concomitant]
     Active Substance: NALOXONE HYDROCHLORIDE\OXYCODONE HYDROCHLORIDE
     Indication: Product used for unknown indication
  4. ACETAMINOPHEN [Concomitant]
     Active Substance: ACETAMINOPHEN
     Indication: Product used for unknown indication
  5. LYRICA [Concomitant]
     Active Substance: PREGABALIN
     Indication: Product used for unknown indication
  6. FENTORA [Concomitant]
     Active Substance: FENTANYL CITRATE
     Indication: Product used for unknown indication
  7. SCD MAGNESIUM OXIDE [Concomitant]
     Indication: Product used for unknown indication
  8. NORZYME [Concomitant]
     Indication: Product used for unknown indication
  9. MOSAPRIDE CITRATE [Concomitant]
     Active Substance: MOSAPRIDE CITRATE
     Indication: Product used for unknown indication
  10. KI CAB [Concomitant]
     Indication: Product used for unknown indication
  11. TRIAZOLAM [Concomitant]
     Active Substance: TRIAZOLAM
     Indication: Product used for unknown indication
  12. DULACKHAN [Concomitant]
     Indication: Product used for unknown indication
  13. ISOTRETINOIN [Concomitant]
     Active Substance: ISOTRETINOIN
     Indication: Product used for unknown indication
  14. REBAMIPIDE [Concomitant]
     Active Substance: REBAMIPIDE
     Indication: Product used for unknown indication
  15. SYNTHROID [Concomitant]
     Active Substance: LEVOTHYROXINE SODIUM
     Indication: Hypothyroidism
  16. TICAGRELOR [Concomitant]
     Active Substance: TICAGRELOR
     Indication: Diabetes mellitus
  17. LIVALO [Concomitant]
     Active Substance: PITAVASTATIN CALCIUM
     Indication: Hyperlipidaemia
  18. VILDAGLIPTIN [Concomitant]
     Active Substance: VILDAGLIPTIN
     Indication: Diabetes mellitus
  19. GLICLAZIDE [Concomitant]
     Active Substance: GLICLAZIDE
     Indication: Diabetes mellitus
  20. YUHAN DEXAMETHASONE DISODIUM PHOSPHATE [Concomitant]
     Indication: Product used for unknown indication
     Dates: start: 20240709, end: 20240709
  21. DONG A GASTER [Concomitant]
     Indication: Product used for unknown indication
     Dates: start: 20240709, end: 20240709
  22. PENIRAMIN [Concomitant]
     Indication: Product used for unknown indication
     Dates: start: 20240709, end: 20240709
  23. ALOXI [Concomitant]
     Active Substance: PALONOSETRON HYDROCHLORIDE
     Indication: Product used for unknown indication
     Dates: start: 20240709, end: 20240709

REACTIONS (1)
  - Asthenia [Recovered/Resolved]

NARRATIVE: CASE EVENT DATE: 20240801
